FAERS Safety Report 13079258 (Version 2)
Quarter: 2018Q3

REPORT INFORMATION
  Report Type: Spontaneous
  Country: US (occurrence: US)
  Receive Date: 20170103
  Receipt Date: 20180813
  Transmission Date: 20181010
  Serious: Yes (Other)
  Sender: FDA-Public Use
  Company Number: US-AMGEN-USASP2016183657

PATIENT
  Age: 27 Year
  Sex: Male

DRUGS (12)
  1. CYCLOPHOSPHAMIDE. [Concomitant]
     Active Substance: CYCLOPHOSPHAMIDE
     Dosage: 1.5 G/M2, UNK
     Dates: start: 20160824
  2. NIVOLUMAB [Concomitant]
     Active Substance: NIVOLUMAB
     Dosage: UNK
     Dates: start: 20160330
  3. PREDNISONE. [Concomitant]
     Active Substance: PREDNISONE
     Dosage: 20 MG, QD
  4. 6 MP [Concomitant]
     Active Substance: MERCAPTOPURINE
     Dosage: 100 MG, UNK
  5. THIOMERSAL [Concomitant]
     Active Substance: THIMEROSAL
  6. METHOTREXATE. [Suspect]
     Active Substance: METHOTREXATE
     Indication: ACUTE LYMPHOCYTIC LEUKAEMIA
     Route: 065
  7. CYTARABINE. [Concomitant]
     Active Substance: CYTARABINE
     Dosage: 100 MG, UNK
  8. TOCILIZUMAB. [Concomitant]
     Active Substance: TOCILIZUMAB
     Dosage: 8 MG/KG, UNK
  9. DEXAMETHASONE. [Concomitant]
     Active Substance: DEXAMETHASONE
     Dosage: 10 MG, UNK
     Route: 042
  10. BLINCYTO [Suspect]
     Active Substance: BLINATUMOMAB
     Indication: ACUTE LYMPHOCYTIC LEUKAEMIA
     Dosage: UNK, CYCLICAL
     Route: 065
  11. VINCRISTINE [Suspect]
     Active Substance: VINCRISTINE
     Indication: ACUTE LYMPHOCYTIC LEUKAEMIA
     Route: 065
  12. FLUCYTOSINE. [Concomitant]
     Active Substance: FLUCYTOSINE

REACTIONS (6)
  - Hypotension [Unknown]
  - Acute lymphocytic leukaemia recurrent [Not Recovered/Not Resolved]
  - Infection [Unknown]
  - Drug ineffective [Unknown]
  - Pyrexia [Unknown]
  - Central nervous system leukaemia [Unknown]
